FAERS Safety Report 8188382-9 (Version None)
Quarter: 2012Q1

REPORT INFORMATION
  Report Type: 
  Country: None (occurrence: None)
  Receive Date: 20120306
  Receipt Date: 20120220
  Transmission Date: 20120608
  Serious: Yes (Hospitalization)
  Sender: FDA-Public Use
  Company Number: PHHY2012FR018311

PATIENT
  Sex: Male

DRUGS (7)
  1. PAROXETINE [Suspect]
     Dosage: 20 MG,  1 DF QD
     Route: 048
     Dates: start: 20111001, end: 20111205
  2. EXELON [Concomitant]
     Dates: start: 20111207
  3. ASPIRIN [Concomitant]
     Dosage: 75 MG,  1 DF QD
  4. MODOPAR [Concomitant]
     Dosage: 125 MG, 2 DF ON MOR, MID AND 1 DF ON EVE
     Route: 048
  5. CLOZAPINE [Suspect]
     Indication: DEMENTIA WITH LEWY BODIES
     Dosage: 12.5 MG, DAILY
     Dates: start: 20111124, end: 20111125
  6. RISPERDAL [Concomitant]
     Dates: start: 20111011, end: 20111021
  7. AMLODIPINE [Concomitant]
     Dosage: 5 MG, 1DF QD
     Route: 048

REACTIONS (4)
  - BRADYCARDIA [None]
  - BLOOD PRESSURE DECREASED [None]
  - MALAISE [None]
  - LOSS OF CONSCIOUSNESS [None]
